FAERS Safety Report 7340748-2 (Version None)
Quarter: 2011Q1

REPORT INFORMATION
  Report Type: 
  Country: None (occurrence: None)
  Receive Date: 20110309
  Receipt Date: 20110301
  Transmission Date: 20110831
  Serious: Yes (Other)
  Sender: FDA-Public Use
  Company Number: CA-ROCHE-763274

PATIENT
  Age: 7 Year
  Sex: Male
  Weight: 23 kg

DRUGS (10)
  1. IFOSFAMIDE [Concomitant]
     Dosage: FORM: POWDER FOR IV SOLUTION
     Route: 042
  2. MESNA [Concomitant]
     Route: 042
  3. DOCUSATE NOS [Concomitant]
     Route: 048
  4. SENOKOT [Concomitant]
  5. KYTRIL [Suspect]
     Route: 042
  6. ETOPOSIDE [Concomitant]
     Route: 042
  7. HYDROXYZINE [Concomitant]
     Route: 048
  8. HYDROMORPHONE HCL [Concomitant]
     Route: 048
  9. LORAZEPAM [Concomitant]
     Dosage: ORAL AND IV
     Route: 050
  10. ONDANSETRON [Suspect]
     Route: 048

REACTIONS (4)
  - MYOCLONUS [None]
  - DYSKINESIA [None]
  - TIC [None]
  - EXCESSIVE EYE BLINKING [None]
